FAERS Safety Report 23851085 (Version 1)
Quarter: 2024Q2

REPORT INFORMATION
  Report Type: Spontaneous
  Country: US (occurrence: US)
  Receive Date: 20240514
  Receipt Date: 20240514
  Transmission Date: 20240716
  Serious: No
  Sender: FDA-Public Use
  Company Number: US-TARSUS PHARMACEUTICALS-TSP-US-2024-000145

PATIENT
  Sex: Male

DRUGS (1)
  1. XDEMVY [Suspect]
     Active Substance: LOTILANER
     Indication: Product used for unknown indication
     Dosage: UNK, BID
     Route: 065
     Dates: end: 2024

REACTIONS (4)
  - Eye irritation [Unknown]
  - Ocular hyperaemia [Unknown]
  - Vision blurred [Unknown]
  - Product use issue [Unknown]
